FAERS Safety Report 21044141 (Version 6)
Quarter: 2022Q3

REPORT INFORMATION
  Report Type: Spontaneous
  Country: IT (occurrence: IT)
  Receive Date: 20220705
  Receipt Date: 20220906
  Transmission Date: 20221026
  Serious: Yes (Hospitalization, Other)
  Sender: FDA-Public Use
  Company Number: IT-NOVARTISPH-NVSC2022IT066021

PATIENT
  Age: 53 Year
  Sex: Male

DRUGS (8)
  1. ETOPOSIDE [Suspect]
     Active Substance: ETOPOSIDE
     Indication: Small cell lung cancer extensive stage
     Dosage: 200 MG, TIW (100 MG/MQ - RECEIVED 200 MG)
     Route: 065
     Dates: start: 20211103
  2. CARBOPLATIN [Suspect]
     Active Substance: CARBOPLATIN
     Indication: Small cell lung cancer extensive stage
     Dosage: 600 MG, TIW (5 MG/AUC - RECEIVED 600 MG)
     Route: 042
     Dates: start: 20211103
  3. ATEZOLIZUMAB [Suspect]
     Active Substance: ATEZOLIZUMAB
     Indication: Small cell lung cancer extensive stage
     Dosage: 23/02/2022 (FROM FEBRUARY 2ND, 2022 MAINTAINANCE WITH ATEZOLIZUMAB IN MONOTHERAPY)
     Route: 065
     Dates: start: 20211103
  4. ATEZOLIZUMAB [Suspect]
     Active Substance: ATEZOLIZUMAB
     Dosage: (FROM FEBRUARY 2ND, 2022 MAINTAINANCE WITH ATEZOLIZUMAB IN MONOTHERAPY), ON 23/MAR/2022, LAST DOSE O
     Route: 065
     Dates: start: 20220223
  5. LURBINECTEDIN [Suspect]
     Active Substance: LURBINECTEDIN
     Indication: Small cell lung cancer
     Dosage: LAST DOSE 25/MAY/2022
     Route: 065
     Dates: end: 20220525
  6. ENOXAPARIN SODIUM [Concomitant]
     Active Substance: ENOXAPARIN SODIUM
     Indication: Product used for unknown indication
     Dosage: UNK
     Route: 065
  7. EDOXABAN TOSYLATE [Concomitant]
     Active Substance: EDOXABAN TOSYLATE
     Indication: Product used for unknown indication
     Dosage: UNK
     Route: 065
  8. PANTOPRAZOLE [Concomitant]
     Active Substance: PANTOPRAZOLE
     Indication: Product used for unknown indication
     Dosage: UNK
     Route: 065

REACTIONS (21)
  - Neutropenia [Recovered/Resolved]
  - Febrile neutropenia [Recovered/Resolved]
  - Pneumobilia [Unknown]
  - Biliary dilatation [Unknown]
  - Ascites [Unknown]
  - COVID-19 [Recovered/Resolved]
  - Device occlusion [Recovered/Resolved]
  - Hyperbilirubinaemia [Recovered/Resolved]
  - Hyperbilirubinaemia [Recovered/Resolved]
  - Hypertransaminasaemia [Recovered/Resolved]
  - Constipation [Recovered/Resolved]
  - Back pain [Recovering/Resolving]
  - Pain [Not Recovered/Not Resolved]
  - Pain [Recovered/Resolved]
  - Hypertransaminasaemia [Recovered/Resolved]
  - Thrombocytopenia [Unknown]
  - Dyspnoea [Not Recovered/Not Resolved]
  - Cough [Not Recovered/Not Resolved]
  - Pyrexia [Recovered/Resolved]
  - Anaemia [Not Recovered/Not Resolved]
  - Platelet count decreased [Not Recovered/Not Resolved]

NARRATIVE: CASE EVENT DATE: 20220112
